FAERS Safety Report 4384301-1 (Version None)
Quarter: 2004Q2

REPORT INFORMATION
  Report Type: 
  Country: None (occurrence: None)
  Receive Date: 20040618
  Receipt Date: 20040608
  Transmission Date: 20050107
  Serious: Yes (Death)
  Sender: FDA-Public Use
  Company Number: US-SHR-03-018488

PATIENT
  Age: 45 Year
  Sex: Female
  Weight: 59.9 kg

DRUGS (11)
  1. BETASERON [Suspect]
     Indication: MULTIPLE SCLEROSIS RELAPSE
     Dosage: SUBCUTANEOUS
     Route: 058
     Dates: start: 19960610
  2. ALTACE [Concomitant]
  3. VERAPAMIL [Concomitant]
  4. PROVIGIL [Concomitant]
  5. PROZAC [Concomitant]
  6. PEPCID [Concomitant]
  7. PREMPRO [Concomitant]
  8. OXYCONTIN [Concomitant]
  9. PERCOCET [Concomitant]
  10. KLONOPIN [Concomitant]
  11. OXYIR (OXYCODONE HYDROCHLORIDE) [Concomitant]

REACTIONS (4)
  - BRONCHITIS [None]
  - MULTIPLE SCLEROSIS RELAPSE [None]
  - PULMONARY THROMBOSIS [None]
  - VENOUS THROMBOSIS LIMB [None]
